FAERS Safety Report 8363392-7 (Version None)
Quarter: 2012Q1

REPORT INFORMATION
  Report Type: 
  Country: None (occurrence: None)
  Receive Date: 20120323
  Receipt Date: 20110516
  Transmission Date: 20120608
  Serious: Yes (Hospitalization)
  Sender: FDA-Public Use
  Company Number: 163-21880-11052338

PATIENT
  Age: 68 Year
  Sex: Female

DRUGS (2)
  1. REVLIMID [Suspect]
     Dosage: 25 MG, 1 IN 1 D, PO 25 MG, QD X 14 DAYS, THEN QOD X 14 DAYS, PO
     Route: 048
     Dates: start: 20091029, end: 20100101
  2. REVLIMID [Suspect]
     Dosage: 25 MG, 1 IN 1 D, PO 25 MG, QD X 14 DAYS, THEN QOD X 14 DAYS, PO
     Route: 048
     Dates: start: 20100701

REACTIONS (2)
  - SINUSITIS [None]
  - BRONCHITIS [None]
